FAERS Safety Report 6622623-1 (Version None)
Quarter: 2010Q1

REPORT INFORMATION
  Report Type: 
  Country: None (occurrence: None)
  Receive Date: 20100310
  Receipt Date: 20100114
  Transmission Date: 20100710
  Serious: No
  Sender: FDA-Public Use
  Company Number: US-BIOGENIDEC-2010BI001621

PATIENT
  Sex: Female
  Weight: 36 kg

DRUGS (1)
  1. AVONEX [Suspect]
     Indication: MULTIPLE SCLEROSIS
     Route: 030
     Dates: end: 20091201

REACTIONS (4)
  - ABASIA [None]
  - PAIN [None]
  - SKIN LESION [None]
  - WEIGHT DECREASED [None]
